FAERS Safety Report 11409883 (Version 3)
Quarter: 2015Q3

REPORT INFORMATION
  Report Type: Spontaneous
  Country: PH (occurrence: PH)
  Receive Date: 20150824
  Receipt Date: 20150902
  Transmission Date: 20151125
  Serious: Yes (Death, Hospitalization, Other)
  Sender: FDA-Public Use
  Company Number: PH-ASTELLAS-2015US029852

PATIENT
  Age: 48 Year
  Sex: Male

DRUGS (4)
  1. CELLCEPT [Concomitant]
     Active Substance: MYCOPHENOLATE MOFETIL\MYCOPHENOLATE MOFETIL HYDROCHLORIDE
     Indication: RENAL TRANSPLANT
     Route: 065
  2. ADVAGRAF [Suspect]
     Active Substance: TACROLIMUS
     Indication: IMMUNOSUPPRESSION
     Route: 048
     Dates: start: 20141016, end: 20150815
  3. PREDNISONE. [Concomitant]
     Active Substance: PREDNISONE
     Indication: RENAL TRANSPLANT
     Route: 065
  4. ADVAGRAF [Suspect]
     Active Substance: TACROLIMUS
     Indication: RENAL TRANSPLANT
     Route: 065

REACTIONS (4)
  - Sepsis [Fatal]
  - Pneumonia [Unknown]
  - Skin infection [Unknown]
  - Hepatic failure [Unknown]

NARRATIVE: CASE EVENT DATE: 20150623
